FAERS Safety Report 4298029-X (Version None)
Quarter: 2004Q1

REPORT INFORMATION
  Report Type: 
  Country: None (occurrence: None)
  Receive Date: 20040218
  Receipt Date: 20011002
  Transmission Date: 20041129
  Serious: Yes (Other)
  Sender: FDA-Public Use
  Company Number: US-BRISTOL-MYERS SQUIBB COMPANY-11528668

PATIENT
  Sex: Female

DRUGS (5)
  1. STADOL [Suspect]
     Route: 045
  2. AMITRIPTYLINE [Concomitant]
  3. CYCLOBENZAPRINE [Concomitant]
  4. PROPRANOLOL [Concomitant]
  5. PROPOXYPHENE NAPSYLATE [Concomitant]

REACTIONS (1)
  - DEPENDENCE [None]
